FAERS Safety Report 9991672 (Version 2)
Quarter: 2014Q1

REPORT INFORMATION
  Report Type: Spontaneous
  Country: US (occurrence: US)
  Receive Date: 20140310
  Receipt Date: 20140310
  Transmission Date: 20141002
  Serious: No
  Sender: FDA-Public Use
  Company Number: US-ASTRAZENECA-2001UW11001

PATIENT
  Age: 72 Year
  Sex: Female
  Weight: 70.3 kg

DRUGS (7)
  1. NEXIUM [Suspect]
     Indication: COUGH
     Route: 048
     Dates: start: 200108
  2. PULMICORT FLEXHALER [Suspect]
     Indication: BRONCHIOLITIS
     Dosage: 180MCG, TWO PUFFS BID
     Route: 055
  3. HYZAAR [Concomitant]
  4. ZOCOR [Concomitant]
  5. HYCOMINE SYRUP WITH CODEINE [Concomitant]
  6. MEDICATION FOR HYPERTENSION [Concomitant]
     Indication: HYPERTENSION
  7. MEDICATION FOR CHOLESTEROL [Concomitant]
     Indication: BLOOD CHOLESTEROL ABNORMAL

REACTIONS (4)
  - Diarrhoea [Recovered/Resolved]
  - Cough [Recovered/Resolved]
  - Off label use [Unknown]
  - Circumstance or information capable of leading to medication error [Unknown]
